FAERS Safety Report 8398536-4 (Version None)
Quarter: 2012Q2

REPORT INFORMATION
  Report Type: 
  Country: None (occurrence: None)
  Receive Date: 20120531
  Receipt Date: 20120514
  Transmission Date: 20120825
  Serious: Yes (Other)
  Sender: FDA-Public Use
  Company Number: US-ROCHE-1069013

PATIENT

DRUGS (4)
  1. LAPATINIB [Suspect]
     Indication: BREAST CANCER METASTATIC
     Route: 048
  2. HERCEPTIN [Suspect]
     Indication: BREAST CANCER METASTATIC
  3. XELODA [Suspect]
     Indication: BREAST CANCER METASTATIC
     Route: 048
  4. ABRAXANE [Suspect]
     Indication: BREAST CANCER METASTATIC

REACTIONS (2)
  - DRUG INEFFECTIVE [None]
  - DISEASE PROGRESSION [None]
